FAERS Safety Report 4606318-1 (Version None)
Quarter: 2005Q2

REPORT INFORMATION
  Report Type: 
  Country: None (occurrence: None)
  Receive Date: 20050303
  Receipt Date: 20041230
  Transmission Date: 20051028
  Serious: No
  Sender: FDA-Public Use
  Company Number: 200421243BWH

PATIENT
  Age: 31 Year
  Sex: Male

DRUGS (2)
  1. LEVITRA [Suspect]
     Indication: ERECTILE DYSFUNCTION
     Dosage: QOD
     Dates: start: 20041201
  2. MULTI-VITAMIN [Concomitant]

REACTIONS (1)
  - EJACULATION DISORDER [None]
